FAERS Safety Report 4402894-2 (Version None)
Quarter: 2004Q3

REPORT INFORMATION
  Report Type: 
  Country: None (occurrence: None)
  Receive Date: 20040719
  Receipt Date: 20040706
  Transmission Date: 20050211
  Serious: Yes (Other)
  Sender: FDA-Public Use
  Company Number: 2004046006

PATIENT
  Age: 45 Year
  Sex: Female

DRUGS (9)
  1. ATARAX [Suspect]
     Indication: MIGRAINE
  2. KETOPROFEN [Suspect]
     Indication: MIGRAINE
  3. LORAZEPAM [Suspect]
     Indication: MIGRAINE
  4. CYCLOBENZAPRINE HYDROCHLORIDE [Suspect]
     Indication: MIGRAINE
  5. VERAPAMIL HCL [Suspect]
     Indication: MIGRAINE
  6. MIDRID (DICHLORALPHENAZONE, ISOMETHEPTENE, PARACETAMOL) [Suspect]
     Indication: MIGRAINE
  7. AXOTAL (OLD FORM) (BUTALBITAL, CAFFEINE, PARACETAMOL) [Concomitant]
  8. ALL OTHER THERAPEUTIC PRODUCTS [Concomitant]
  9. NORTRIPTYLINE HCL [Concomitant]

REACTIONS (2)
  - CARDIAC DISORDER [None]
  - HYPERTENSION [None]
